FAERS Safety Report 4294632-1 (Version None)
Quarter: 2004Q1

REPORT INFORMATION
  Report Type: 
  Country: None (occurrence: None)
  Receive Date: 20040211
  Receipt Date: 20040122
  Transmission Date: 20041129
  Serious: Yes (Death)
  Sender: FDA-Public Use
  Company Number: JP_040102488

PATIENT
  Age: 30 Year
  Sex: Female
  Weight: 75 kg

DRUGS (6)
  1. ZYPREXA [Suspect]
     Indication: SCHIZOPHRENIA, DISORGANISED TYPE
     Dosage: 10 MG DAY
     Dates: start: 20030310
  2. ROHYPNOL (FLUNITRAZEPAM) [Concomitant]
  3. FURSENNID (SENNA LEAF) [Concomitant]
  4. MERCAZOLE (THIAMAZOLE) [Concomitant]
  5. HIRNAMIN (LEVOMEPROMAZINE) [Concomitant]
  6. ISOMYTAL (AMOBARBITAL) [Concomitant]

REACTIONS (9)
  - BRONCHITIS [None]
  - CSF WHITE BLOOD CELL COUNT INCREASED [None]
  - FACE OEDEMA [None]
  - HYPOTHYROIDISM [None]
  - LYMPHOCYTE COUNT DECREASED [None]
  - NASOPHARYNGITIS [None]
  - NEUTROPHIL COUNT INCREASED [None]
  - SLEEP APNOEA SYNDROME [None]
  - SOMNOLENCE [None]
